FAERS Safety Report 17685828 (Version 1)
Quarter: 2020Q2

REPORT INFORMATION
  Report Type: Spontaneous
  Country: CA (occurrence: CA)
  Receive Date: 20200420
  Receipt Date: 20200420
  Transmission Date: 20200714
  Serious: Yes (Other)
  Sender: FDA-Public Use
  Company Number: CA-SAMSUNG BIOEPIS-SB-2020-12976

PATIENT
  Age: 43 Year
  Sex: Female

DRUGS (3)
  1. INFLIXIMAB [Suspect]
     Active Substance: INFLIXIMAB
     Indication: CROHN^S DISEASE
     Route: 042
  2. ISONIAZID. [Concomitant]
     Active Substance: ISONIAZID
     Indication: LATENT TUBERCULOSIS
     Route: 065
  3. PYRIDOXINE HYDROCHLORIDE. [Concomitant]
     Active Substance: PYRIDOXINE HYDROCHLORIDE
     Indication: LATENT TUBERCULOSIS
     Route: 065

REACTIONS (7)
  - Nasopharyngitis [Not Recovered/Not Resolved]
  - Contraindicated product administered [Not Recovered/Not Resolved]
  - Jaundice [Not Recovered/Not Resolved]
  - Haematochezia [Not Recovered/Not Resolved]
  - Headache [Not Recovered/Not Resolved]
  - Cough [Not Recovered/Not Resolved]
  - Diarrhoea [Not Recovered/Not Resolved]
